FAERS Safety Report 13885089 (Version 7)
Quarter: 2017Q4

REPORT INFORMATION
  Report Type: Spontaneous
  Country: CA (occurrence: CA)
  Receive Date: 20170821
  Receipt Date: 20171004
  Transmission Date: 20180320
  Serious: Yes (Hospitalization, Other)
  Sender: FDA-Public Use
  Company Number: CA-CELLTRION INC.-2017CA010624

PATIENT

DRUGS (5)
  1. INFLECTRA [Suspect]
     Active Substance: INFLIXIMAB-DYYB
     Indication: COLITIS ULCERATIVE
     Dosage: 477 MG, CYCLIC (EVERY 0,2,6 WEEKS THEN EVERY 8 WEEKS)
     Route: 042
     Dates: start: 20170726, end: 20170726
  2. IMURAN [Suspect]
     Active Substance: AZATHIOPRINE
     Indication: PRODUCT USED FOR UNKNOWN INDICATION
     Dosage: UNK
     Route: 065
     Dates: end: 20170810
  3. CIALIS [Concomitant]
     Active Substance: TADALAFIL
     Dosage: OCCASIONALLY
     Route: 065
  4. COVERSYL                           /00790702/ [Concomitant]
     Active Substance: PERINDOPRIL
     Dosage: 2 MG, 1X/DAY
     Route: 065
  5. INDOMETHACIN                       /00003801/ [Concomitant]
     Active Substance: INDOMETHACIN
     Dosage: UNK, CYCLIC (ONCE EVERY 6 MONTHS)
     Route: 065

REACTIONS (3)
  - Urticaria [Unknown]
  - Malaise [Unknown]
  - Pyrexia [Recovered/Resolved]
